FAERS Safety Report 16632285 (Version 1)
Quarter: 2019Q3

REPORT INFORMATION
  Report Type: Spontaneous
  Country: BR (occurrence: BR)
  Receive Date: 20190725
  Receipt Date: 20190725
  Transmission Date: 20191004
  Serious: No
  Sender: FDA-Public Use
  Company Number: BR-US WORLDMEDS, LLC-USW201907-001348

PATIENT
  Sex: Male

DRUGS (1)
  1. ZELNORM [Suspect]
     Active Substance: TEGASEROD MALEATE
     Indication: INTESTINAL OPERATION

REACTIONS (1)
  - Gastrointestinal disorder [Recovered/Resolved]
